FAERS Safety Report 9078368 (Version 1)
Quarter: 2013Q1

REPORT INFORMATION
  Report Type: Report from Study
  Country: KR (occurrence: KR)
  Receive Date: 20130215
  Receipt Date: 20130215
  Transmission Date: 20140127
  Serious: Yes (Other)
  Sender: FDA-Public Use
  Company Number: KR-ROCHE-1188483

PATIENT
  Sex: Male

DRUGS (1)
  1. NO DRUG NAME [Suspect]

REACTIONS (6)
  - Bladder outlet obstruction [Unknown]
  - Abdominal wall disorder [Unknown]
  - Neural tube defect [Unknown]
  - Spinal deformity [Unknown]
  - Limb deformity [Unknown]
  - Maternal exposure timing unspecified [Unknown]
